FAERS Safety Report 5081025-2 (Version None)
Quarter: 2006Q3

REPORT INFORMATION
  Report Type: 
  Country: None (occurrence: None)
  Receive Date: 20060810
  Receipt Date: 20060801
  Transmission Date: 20061208
  Serious: Yes (Hospitalization)
  Sender: FDA-Public Use
  Company Number: 2006-146233-NL

PATIENT
  Age: 25 Year
  Sex: Male

DRUGS (4)
  1. DEXAMETHASONE [Suspect]
     Indication: TESTIS CANCER
     Dosage: 4 MG ONCE/ 8 MG QD
  2. BLEOMYCIN [Suspect]
     Indication: TESTIS CANCER
     Dosage: 20 IU
  3. CISPLATIN [Suspect]
     Indication: TESTIS CANCER
     Dosage: 40 MG/M2
  4. ETOPOSIDE [Suspect]
     Indication: TESTIS CANCER
     Dosage: DF

REACTIONS (2)
  - GROIN PAIN [None]
  - OSTEONECROSIS [None]
